FAERS Safety Report 5328439-0 (Version None)
Quarter: 2007Q3

REPORT INFORMATION
  Report Type: 
  Country: None (occurrence: None)
  Receive Date: 20070516
  Receipt Date: 20070516
  Transmission Date: 20080115
  Serious: Yes (Other)
  Sender: FDA-Public Use
  Company Number: None

PATIENT
  Age: 41 Year
  Sex: Female
  Weight: 58.0604 kg

DRUGS (2)
  1. YAZ [Suspect]
     Indication: CONTRACEPTION
     Dosage: 1 DAY
     Dates: start: 20060601, end: 20061229
  2. YASMIN [Suspect]
     Indication: CONTRACEPTION
     Dosage: 1 DAY
     Dates: start: 20070101

REACTIONS (2)
  - BREAST PAIN [None]
  - MENORRHAGIA [None]
